FAERS Safety Report 18069131 (Version 1)
Quarter: 2020Q3

REPORT INFORMATION
  Report Type: Report from Study
  Country: US (occurrence: US)
  Receive Date: 20200725
  Receipt Date: 20200725
  Transmission Date: 20201103
  Serious: No
  Sender: FDA-Public Use
  Company Number: NVSC2020US209253

PATIENT
  Sex: Male
  Weight: 69.84 kg

DRUGS (1)
  1. ILARIS [Suspect]
     Active Substance: CANAKINUMAB
     Indication: ARTHROPATHY
     Dosage: 300 MG, Q4W
     Route: 058

REACTIONS (1)
  - Arthralgia [Unknown]
